FAERS Safety Report 11803361 (Version 1)
Quarter: 2015Q4

REPORT INFORMATION
  Report Type: Spontaneous
  Country: GB (occurrence: GB)
  Receive Date: 20151204
  Receipt Date: 20151204
  Transmission Date: 20160305
  Serious: Yes (Hospitalization)
  Sender: FDA-Public Use
  Company Number: GB-TEVA-612406ACC

PATIENT
  Age: 88 Year
  Sex: Female

DRUGS (21)
  1. BISOPROLOL [Concomitant]
     Active Substance: BISOPROLOL
  2. FERROUS SULFATE [Concomitant]
     Active Substance: FERROUS SULFATE\FERROUS SULFATE, DRIED
  3. LAXIDO [Concomitant]
     Active Substance: POLYETHYLENE GLYCOL 3350\POTASSIUM CHLORIDE\SODIUM BICARBONATE\SODIUM CHLORIDE
  4. OMEPRAZOLE. [Concomitant]
     Active Substance: OMEPRAZOLE
  5. CO-AMOXICLAV [Concomitant]
     Active Substance: AMOXICILLIN\CLAVULANIC ACID
  6. ALENDRONIC ACID [Concomitant]
     Active Substance: ALENDRONIC ACID
  7. CODEINE [Concomitant]
     Active Substance: CODEINE
  8. DIGOXIN. [Concomitant]
     Active Substance: DIGOXIN
  9. METFORMIN [Concomitant]
     Active Substance: METFORMIN HYDROCHLORIDE
  10. PARACETAMOL [Concomitant]
     Active Substance: ACETAMINOPHEN
  11. NITROFURANTOIN. [Suspect]
     Active Substance: NITROFURANTOIN
     Indication: URINARY TRACT INFECTION
     Dosage: 200 MILLIGRAM DAILY;
     Route: 048
     Dates: start: 20151101, end: 20151105
  12. DULOXETINE. [Concomitant]
     Active Substance: DULOXETINE
  13. MORPHINE SULPHATE [Concomitant]
     Active Substance: MORPHINE SULFATE
  14. ZOPICLONE [Concomitant]
     Active Substance: ZOPICLONE
  15. FUROSEMIDE. [Concomitant]
     Active Substance: FUROSEMIDE
  16. SIMVASTATIN. [Concomitant]
     Active Substance: SIMVASTATIN
  17. VITAMIN B COMPLEX STRONG [Concomitant]
  18. WARFARIN [Suspect]
     Active Substance: WARFARIN
     Indication: ATRIAL FIBRILLATION
     Dosage: AS PER INTERNATIONAL NORMALIZED RATIO
     Route: 048
     Dates: start: 20151006, end: 20151113
  19. FOLIC ACID. [Concomitant]
     Active Substance: FOLIC ACID
  20. SENNA [Concomitant]
     Active Substance: SENNA LEAF\SENNOSIDES\SENNOSIDES A AND B
  21. ADCAL-D3 [Concomitant]
     Active Substance: CALCIUM CARBONATE\CHOLECALCIFEROL

REACTIONS (1)
  - International normalised ratio increased [Recovered/Resolved]

NARRATIVE: CASE EVENT DATE: 20151104
